FAERS Safety Report 4604879-X (Version None)
Quarter: 2005Q1

REPORT INFORMATION
  Report Type: 
  Country: None (occurrence: None)
  Receive Date: 20050310
  Receipt Date: 20050310
  Transmission Date: 20050727
  Serious: Yes (Life-Threatening, Other)
  Sender: FDA-Public Use
  Company Number: None

PATIENT
  Sex: Female
  Weight: 71.2147 kg

DRUGS (2)
  1. PAXIL [Suspect]
     Dosage: ORAL
     Route: 048
  2. ZOLOFT [Suspect]

REACTIONS (4)
  - DIZZINESS [None]
  - FEELING ABNORMAL [None]
  - SUICIDAL IDEATION [None]
  - WEIGHT INCREASED [None]
